FAERS Safety Report 7927718-8 (Version None)
Quarter: 2011Q4

REPORT INFORMATION
  Report Type: 
  Country: None (occurrence: None)
  Receive Date: 20111116
  Receipt Date: 20111107
  Transmission Date: 20120403
  Serious: Yes (Hospitalization)
  Sender: FDA-Public Use
  Company Number: 2011-01175

PATIENT
  Age: 56 Year
  Sex: Female
  Weight: 81.6475 kg

DRUGS (6)
  1. DICYCLOMINE (CAPSULES) [Concomitant]
  2. PAROXETINE (PAXIL) (TABLETS) [Concomitant]
  3. LISINOPRIL [Suspect]
     Indication: HYPERTENSION
     Dosage: 10 MG (10 MG,1 IN 1 D),PER ORAL
     Route: 048
     Dates: start: 20110303, end: 20110505
  4. LITHIUM (CAPSULES) [Concomitant]
  5. ESTRADIOL PATCH [Concomitant]
  6. MEDROXYPROGESTERONE (TABLETS) [Concomitant]

REACTIONS (3)
  - SWELLING [None]
  - BLISTER [None]
  - RASH [None]
